FAERS Safety Report 6288767-1 (Version None)
Quarter: 2009Q3

REPORT INFORMATION
  Report Type: 
  Country: None (occurrence: None)
  Receive Date: 20090729
  Receipt Date: 20090724
  Transmission Date: 20100115
  Serious: Yes (Hospitalization)
  Sender: FDA-Public Use
  Company Number: PHHO2009ES08276

PATIENT
  Sex: Male
  Weight: 101 kg

DRUGS (2)
  1. RAD 666 RAD+TAB [Suspect]
     Indication: RENAL TRANSPLANT
     Dosage: 7 MG/DAY
     Route: 048
     Dates: start: 20090402, end: 20090615
  2. TACROLIMUS COMP-TAC+ [Suspect]
     Indication: RENAL TRANSPLANT
     Dosage: UNK
     Dates: start: 20090402, end: 20090615

REACTIONS (7)
  - BLOOD CREATININE INCREASED [None]
  - DRUG INEFFECTIVE [None]
  - GRAFT COMPLICATION [None]
  - KIDNEY TRANSPLANT REJECTION [None]
  - OEDEMA [None]
  - PYREXIA [None]
  - RENAL IMPAIRMENT [None]
